FAERS Safety Report 4297397-2 (Version None)
Quarter: 2004Q1

REPORT INFORMATION
  Report Type: 
  Country: None (occurrence: None)
  Receive Date: 20040217
  Receipt Date: 20040217
  Transmission Date: 20041129
  Serious: No
  Sender: FDA-Public Use
  Company Number: None

PATIENT
  Age: 51 Year
  Sex: Female

DRUGS (1)
  1. ZOVIA 1/35E-28 [Suspect]
     Indication: ORAL CONTRACEPTION
     Dosage: 1 AS DIRECTED PO
     Route: 048
     Dates: start: 20031201, end: 20040101

REACTIONS (1)
  - PHARMACEUTICAL PRODUCT COMPLAINT [None]
